FAERS Safety Report 8427625-0 (Version None)
Quarter: 2012Q2

REPORT INFORMATION
  Report Type: 
  Country: None (occurrence: None)
  Receive Date: 20120611
  Receipt Date: 20120607
  Transmission Date: 20120825
  Serious: Yes (Hospitalization, Other)
  Sender: FDA-Public Use
  Company Number: NZ-BAYER-201036951GPV

PATIENT
  Age: 69 Year
  Sex: Male
  Weight: 51.6 kg

DRUGS (21)
  1. PLACEBO [Suspect]
     Dosage: 200 MG DAILY DOSE, QD ORAL
  2. SPIRONOLACTONE [Concomitant]
     Indication: CARDIOVASCULAR DISORDER
     Dosage: 20 MG (DAILY DOSE), , ORAL
     Route: 048
     Dates: start: 20100814, end: 20100824
  3. PLACEBO [Suspect]
     Indication: HEPATIC NEOPLASM MALIGNANT
     Dosage: 100 MG DAILY DOSE, QD ORAL
     Route: 048
     Dates: start: 20100809, end: 20100823
  4. SPIRONOLACTONE [Concomitant]
     Indication: ASCITES
     Dosage: 100 MG (DAILY DOSE), QD, ORAL
     Route: 048
  5. NADOLOL [Concomitant]
     Indication: CARDIOVASCULAR DISORDER
     Dosage: 40 MG (DAILY DOSE), ,
     Dates: start: 20100814, end: 20100824
  6. METOCLOPRAMIDE [Concomitant]
     Dosage: 10 MG (DAILY DOSE), PRN,
     Dates: start: 20100814, end: 20100824
  7. ACETAMINOPHEN [Concomitant]
     Dosage: 1 G (DAILY DOSE), PRN,
     Dates: start: 20100814, end: 20100824
  8. ETHAMBUTOL HYDROCHLORIDE [Concomitant]
     Dosage: 800 MG (DAILY DOSE), QD,
  9. PLACEBO [Suspect]
     Dosage: 100 MG DAILY DOSE, QD ORAL
     Route: 048
     Dates: start: 20100913, end: 20101104
  10. SORAFENIB (RAF KINASE INHIBITOR) [Suspect]
     Dosage: 400MG DAILY DOSE, QD ORAL
     Route: 048
     Dates: start: 20100913, end: 20101104
  11. PYRAZINAMIDE [Concomitant]
     Dates: start: 20101001, end: 20101015
  12. ANALGESICS [Concomitant]
     Indication: NAUSEA
     Dosage: UNK
     Dates: start: 20101101
  13. COTRIM [Concomitant]
     Dosage: 960 MG (DAILY DOSE), , ORAL
     Route: 048
     Dates: start: 20100814, end: 20100824
  14. ANTIEMETICS AND ANTINAUSEANTS [Concomitant]
     Indication: NAUSEA
     Dosage: UNK
     Dates: start: 20101101
  15. SORAFENIB (RAF KINASE INHIBITOR) [Suspect]
     Indication: HEPATIC NEOPLASM MALIGNANT
     Dosage: 400MG DAILY DOSE, QD ORAL
     Route: 048
     Dates: start: 20100809, end: 20100823
  16. TRAMADOL HCL [Concomitant]
     Dosage: 50 MG (DAILY DOSE), PRN,
     Dates: start: 20100814, end: 20100824
  17. FORTISIP [Concomitant]
     Indication: MEDICAL DIET
     Dosage: 1DF= CAN
     Route: 048
     Dates: start: 20100809
  18. FUROSEMIDE [Concomitant]
     Indication: ASCITES
     Dosage: 80 MG (DAILY DOSE), QD, ORAL
     Route: 048
     Dates: start: 20100814, end: 20100824
  19. FUROSEMIDE [Concomitant]
     Dosage: 40 MG (DAILY DOSE), QD, ORAL
     Route: 048
     Dates: start: 20100823
  20. NADOLOL [Concomitant]
     Indication: ASCITES
  21. MOXIFLOXACIN [Concomitant]
     Dosage: 400 MG (DAILY DOSE), QD,

REACTIONS (3)
  - HYPONATRAEMIA [None]
  - ASCITES [None]
  - PERITONEAL TUBERCULOSIS [None]
